FAERS Safety Report 6922991-7 (Version None)
Quarter: 2010Q3

REPORT INFORMATION
  Report Type: 
  Country: None (occurrence: None)
  Receive Date: 20100813
  Receipt Date: 20100802
  Transmission Date: 20110219
  Serious: Yes (Hospitalization)
  Sender: FDA-Public Use
  Company Number: FR-PFIZER INC-2010098512

PATIENT
  Age: 87 Year
  Sex: Male

DRUGS (11)
  1. ATARAX [Suspect]
     Dosage: 50 MG, DAILY
     Route: 048
     Dates: end: 20100510
  2. DIFFU K [Suspect]
     Dosage: 600 MG, DAILY
     Route: 048
     Dates: end: 20100510
  3. CYMBALTA [Suspect]
     Indication: DEPRESSION
     Dosage: 60 MG, DAILY
     Route: 048
     Dates: start: 20100421, end: 20100510
  4. ANAFRANIL [Suspect]
     Dosage: 25 MG, DAILY
     Route: 048
     Dates: end: 20100510
  5. LORAZEPAM [Suspect]
     Dosage: 1.25 MG, DAILY
     Route: 048
     Dates: end: 20100510
  6. KARDEGIC [Suspect]
     Dosage: 75 MG, DAILY
     Route: 048
     Dates: end: 20100510
  7. DIAMICRON [Suspect]
     Dosage: 30 MG, DAILY
     Route: 048
     Dates: end: 20100510
  8. LANSOPRAZOLE [Suspect]
     Dosage: 15 MG, DAILY
     Route: 048
     Dates: end: 20100510
  9. FUROSEMIDE [Suspect]
     Dosage: 40 MG, DAILY
     Route: 048
     Dates: end: 20100510
  10. ESCITALOPRAM OXALATE [Suspect]
     Dosage: 10 MG, DAILY
     Route: 048
     Dates: end: 20100510
  11. TAMSULOSIN HYDROCHLORIDE [Suspect]
     Dosage: 0.4 MG, DAILY
     Route: 048
     Dates: end: 20100510

REACTIONS (1)
  - HEPATITIS FULMINANT [None]
